FAERS Safety Report 12449613 (Version 1)
Quarter: 2016Q2

REPORT INFORMATION
  Report Type: Spontaneous
  Country: TW (occurrence: TW)
  Receive Date: 20160609
  Receipt Date: 20160609
  Transmission Date: 20160815
  Serious: Yes (Hospitalization)
  Sender: FDA-Public Use
  Company Number: TW-ROCHE-1770229

PATIENT
  Age: 3 Year
  Sex: Male

DRUGS (1)
  1. RIVOTRIL [Suspect]
     Active Substance: CLONAZEPAM
     Indication: PRODUCT USED FOR UNKNOWN INDICATION
     Dosage: 0.5 MG/TABLET
     Route: 065
     Dates: start: 20160604, end: 20160604

REACTIONS (3)
  - Coma [Recovering/Resolving]
  - Loss of consciousness [Recovering/Resolving]
  - Accidental exposure to product by child [Unknown]

NARRATIVE: CASE EVENT DATE: 20160604
